FAERS Safety Report 12216079 (Version 1)
Quarter: 2016Q1

REPORT INFORMATION
  Report Type: Spontaneous
  Country: PT (occurrence: PT)
  Receive Date: 20160329
  Receipt Date: 20160329
  Transmission Date: 20160526
  Serious: Yes (Other)
  Sender: FDA-Public Use
  Company Number: PT-ASTRAZENECA-2016SE31246

PATIENT
  Age: 11777 Day
  Sex: Female

DRUGS (3)
  1. NEXIUM [Suspect]
     Active Substance: ESOMEPRAZOLE MAGNESIUM
     Route: 048
  2. NEXIUM [Suspect]
     Active Substance: ESOMEPRAZOLE MAGNESIUM
     Route: 048
     Dates: start: 20160304
  3. DUSPATAL RETARD [Suspect]
     Active Substance: MEBEVERINE HYDROCHLORIDE
     Route: 048
     Dates: start: 20160304

REACTIONS (2)
  - Rash [Unknown]
  - Macule [Unknown]

NARRATIVE: CASE EVENT DATE: 20160304
